FAERS Safety Report 8581055-X (Version None)
Quarter: 2012Q3

REPORT INFORMATION
  Report Type: 
  Country: None (occurrence: None)
  Receive Date: 20120809
  Receipt Date: 20120730
  Transmission Date: 20120928
  Serious: Yes (Hospitalization, Other)
  Sender: FDA-Public Use
  Company Number: US-BAYER-2012-022088

PATIENT
  Age: 37 Year
  Sex: Female
  Weight: 112.2 kg

DRUGS (7)
  1. NEURONTIN [Concomitant]
  2. GABAPENTIN [Concomitant]
  3. YASMIN [Suspect]
     Indication: NEOPLASM PROPHYLAXIS
  4. LEVOTHYROXINE SODIUM [Concomitant]
     Indication: THYROID DISORDER
     Dosage: UNK
     Dates: start: 19950101
  5. MOBIC [Concomitant]
  6. YASMIN [Suspect]
     Indication: MENSTRUATION IRREGULAR
     Dosage: UNK
     Dates: start: 20040101, end: 20050701
  7. SKELAXIN [Concomitant]

REACTIONS (10)
  - DEEP VEIN THROMBOSIS [None]
  - THROMBOPHLEBITIS SUPERFICIAL [None]
  - PAIN [None]
  - PSYCHOLOGICAL TRAUMA [None]
  - OEDEMA PERIPHERAL [None]
  - ERYTHEMA [None]
  - INJURY [None]
  - ANXIETY [None]
  - ANHEDONIA [None]
  - FEAR [None]
